FAERS Safety Report 11459580 (Version 1)
Quarter: 2015Q3

REPORT INFORMATION
  Report Type: Spontaneous
  Country: None (occurrence: US)
  Receive Date: 20150904
  Receipt Date: 20150904
  Transmission Date: 20151125
  Serious: No
  Sender: FDA-Public Use
  Company Number: US-TARO-2014TAR00639

PATIENT
  Sex: Male

DRUGS (2)
  1. WARFARIN SODIUM TABLETS USP 7.5MG [Suspect]
     Active Substance: WARFARIN SODIUM
     Dosage: 7.5 MG, 1X/DAY
  2. UNSPECIFIED PRESCRIPTION MEDICATIONS [Concomitant]

REACTIONS (2)
  - Drug ineffective [Unknown]
  - International normalised ratio abnormal [Unknown]
